FAERS Safety Report 25989330 (Version 2)
Quarter: 2025Q4

REPORT INFORMATION
  Report Type: Spontaneous
  Country: US (occurrence: US)
  Receive Date: 20251103
  Receipt Date: 20251208
  Transmission Date: 20260118
  Serious: Yes (Hospitalization)
  Sender: CSL BEHRING
  Company Number: US-BEH-2025223461

PATIENT
  Sex: Female

DRUGS (3)
  1. KCENTRA [Suspect]
     Active Substance: COAGULATION FACTOR IX HUMAN\COAGULATION FACTOR VII HUMAN\COAGULATION FACTOR X HUMAN\PROTEIN C\PROTEI
     Indication: Gastrointestinal haemorrhage
     Dosage: 500 IU
     Route: 065
  2. KCENTRA [Suspect]
     Active Substance: COAGULATION FACTOR IX HUMAN\COAGULATION FACTOR VII HUMAN\COAGULATION FACTOR X HUMAN\PROTEIN C\PROTEI
     Indication: Gastrointestinal haemorrhage
     Dosage: 500 IU
     Route: 065
  3. XARELTO [Concomitant]
     Active Substance: RIVAROXABAN

REACTIONS (2)
  - Haemorrhage [Unknown]
  - Incorrect dose administered [Unknown]
